FAERS Safety Report 6122030-4 (Version None)
Quarter: 2009Q1

REPORT INFORMATION
  Report Type: 
  Country: None (occurrence: None)
  Receive Date: 20090316
  Receipt Date: 20090302
  Transmission Date: 20090719
  Serious: Yes (Hospitalization)
  Sender: FDA-Public Use
  Company Number: 005311

PATIENT
  Age: 60 Year
  Sex: Male

DRUGS (2)
  1. PLETAL [Suspect]
     Dosage: ORAL
     Route: 048
  2. ASPIRIN [Concomitant]

REACTIONS (6)
  - ALTERED STATE OF CONSCIOUSNESS [None]
  - BLOOD PRESSURE DECREASED [None]
  - CARDIAC TAMPONADE [None]
  - CEREBRAL INFARCTION [None]
  - PERICARDIAL HAEMORRHAGE [None]
  - SUBDURAL HAEMATOMA [None]
